FAERS Safety Report 8849444 (Version 1)
Quarter: 2012Q4

REPORT INFORMATION
  Report Type: 
  Country: DE (occurrence: DE)
  Receive Date: 20121019
  Receipt Date: 20121019
  Transmission Date: 20130627
  Serious: Yes (Death, Other)
  Sender: FDA-Public Use
  Company Number: DE-ROXANE LABORATORIES, INC.-2012-RO-02010RO

PATIENT
  Age: 89 Year
  Sex: Male

DRUGS (17)
  1. RISPERIDONE [Suspect]
     Indication: DELIRIUM
     Dosage: 1 mg
  2. RISPERIDONE [Suspect]
     Dosage: 1.5 mg
  3. GALANTAMINE HYDROBROMIDE [Suspect]
     Dosage: 16 mg
  4. LORAZEPAM [Suspect]
  5. HALOPERIDOL [Suspect]
     Indication: DELIRIUM
     Dosage: 5 mg
  6. HALOPERIDOL [Suspect]
     Dosage: 3 mg
  7. HALOPERIDOL [Suspect]
     Dosage: 2.5 mg
  8. MELPERONE [Suspect]
     Indication: DELIRIUM
  9. MELPERONE [Suspect]
     Dosage: 250 mg
  10. ALFUZOSIN [Suspect]
     Indication: DELIRIUM
     Dosage: 10 mg
  11. OXAZEPAM [Suspect]
     Indication: SLEEP DISORDER
     Dosage: 20 mg
  12. OXAZEPAM [Suspect]
     Dosage: 15 mg
  13. BISOPROLOL [Suspect]
     Dosage: 5 mg
  14. CAPTOPRIL [Suspect]
     Dosage: 50 mg
  15. HYDROCHLOROTHIAZIDE [Suspect]
     Dosage: 25 mg
  16. ISOSORBIDE DINITRATE [Suspect]
     Dosage: 120 mg
  17. ASPIRIN [Suspect]
     Dosage: 100 mg

REACTIONS (5)
  - Death [Fatal]
  - Bundle branch block right [Unknown]
  - Renal failure [Unknown]
  - Normochromic normocytic anaemia [Unknown]
  - Restlessness [Unknown]
